FAERS Safety Report 21791994 (Version 2)
Quarter: 2023Q1

REPORT INFORMATION
  Report Type: Spontaneous
  Country: US (occurrence: None)
  Receive Date: 20221229
  Receipt Date: 20230118
  Transmission Date: 20230418
  Serious: No
  Sender: FDA-Public Use
  Company Number: 2022A394703

PATIENT
  Age: 744 Month
  Sex: Female
  Weight: 131.5 kg

DRUGS (3)
  1. CALQUENCE [Suspect]
     Active Substance: ACALABRUTINIB
     Indication: B-cell lymphoma
     Route: 048
     Dates: start: 202207
  2. CALQUENCE [Suspect]
     Active Substance: ACALABRUTINIB
     Indication: Anaemia
     Route: 048
     Dates: start: 202207
  3. IMBRUVICA [Concomitant]
     Active Substance: IBRUTINIB

REACTIONS (6)
  - Onychoclasis [Not Recovered/Not Resolved]
  - Headache [Not Recovered/Not Resolved]
  - Arthralgia [Not Recovered/Not Resolved]
  - Alopecia [Unknown]
  - Drug ineffective [Unknown]
  - Off label use [Unknown]

NARRATIVE: CASE EVENT DATE: 20220701
